FAERS Safety Report 9783333 (Version 4)
Quarter: 2014Q1

REPORT INFORMATION
  Report Type: Spontaneous
  Country: IT (occurrence: IT)
  Receive Date: 20131226
  Receipt Date: 20140213
  Transmission Date: 20141002
  Serious: Yes (Hospitalization)
  Sender: FDA-Public Use
  Company Number: IT-TEVA-451250ISR

PATIENT
  Age: 77 Year
  Sex: Female
  Weight: 54 kg

DRUGS (5)
  1. FLUOROURACILE TEVA [Suspect]
     Indication: COLON CANCER
     Dosage: 2969 MILLIGRAM DAILY;
     Route: 042
     Dates: start: 20130214, end: 20130228
  2. ATENOLOLO [Concomitant]
     Indication: HYPERTENSION
     Dosage: 100 MILLIGRAM DAILY;
     Route: 042
     Dates: start: 20130201, end: 20130323
  3. LEDERFOLIN [Concomitant]
     Indication: COLON CANCER
     Dosage: 285 MILLIGRAM DAILY;
     Route: 042
     Dates: start: 20130214, end: 20130228
  4. LIMICAN [Concomitant]
     Indication: PROPHYLAXIS
     Dosage: 50 MILLIGRAM DAILY;
     Route: 040
     Dates: start: 20130214, end: 20130228
  5. AVASTIN [Concomitant]
     Indication: COLON CANCER
     Dosage: 270 MILLIGRAM DAILY; CONCENTRATE FOR SOLUTION FOR INFUSION
     Route: 042
     Dates: start: 20130215, end: 20130301

REACTIONS (9)
  - Diarrhoea [Recovered/Resolved]
  - Hyperpyrexia [Recovered/Resolved]
  - Hypokalaemia [Recovered/Resolved]
  - Syncope [Recovered/Resolved]
  - Vomiting [Recovered/Resolved]
  - Weight decreased [Recovered/Resolved]
  - Visual acuity reduced [Recovered/Resolved]
  - Hypoacusis [Recovered/Resolved]
  - Asthenia [Recovered/Resolved]
